FAERS Safety Report 25825231 (Version 1)
Quarter: 2025Q3

REPORT INFORMATION
  Report Type: Spontaneous
  Country: US (occurrence: US)
  Receive Date: 20250919
  Receipt Date: 20250919
  Transmission Date: 20251021
  Serious: No
  Sender: EISAI
  Company Number: US-Eisai-EC-2025-196256

PATIENT
  Age: 65 Year
  Sex: Male

DRUGS (6)
  1. LECANEMAB [Suspect]
     Active Substance: LECANEMAB
     Indication: Dementia Alzheimer^s type
     Route: 042
  2. DONEPEZIL [Concomitant]
     Active Substance: DONEPEZIL
  3. METHYLPHENIDATE [Concomitant]
     Active Substance: METHYLPHENIDATE
  4. TADALAFIL [Concomitant]
     Active Substance: TADALAFIL
  5. TAMSULOSIN [Concomitant]
     Active Substance: TAMSULOSIN
  6. UREA [Concomitant]
     Active Substance: UREA

REACTIONS (1)
  - Urinary retention [Not Recovered/Not Resolved]
